FAERS Safety Report 7750549-9 (Version None)
Quarter: 2011Q3

REPORT INFORMATION
  Report Type: 
  Country: None (occurrence: None)
  Receive Date: 20110914
  Receipt Date: 20110909
  Transmission Date: 20111222
  Serious: Yes (Death, Life-Threatening, Hospitalization)
  Sender: FDA-Public Use
  Company Number: IT-CEPHALON-2011003325

PATIENT
  Sex: Male
  Weight: 80 kg

DRUGS (4)
  1. OFATUMUMAB [Suspect]
     Route: 042
     Dates: start: 20110530
  2. DESAMETASONE FOSF [Concomitant]
     Dates: start: 20110617, end: 20110628
  3. TREANDA [Suspect]
     Route: 042
     Dates: start: 20110531, end: 20110601
  4. PREDNISONE [Concomitant]
     Dates: start: 20110613, end: 20110617

REACTIONS (7)
  - DYSPHONIA [None]
  - HYPERCALCAEMIA [None]
  - SEPTIC SHOCK [None]
  - BONE PAIN [None]
  - HYPERURICAEMIA [None]
  - RENAL FAILURE [None]
  - ASTHENIA [None]
